FAERS Safety Report 26028990 (Version 1)
Quarter: 2025Q4

REPORT INFORMATION
  Report Type: Spontaneous
  Country: CN (occurrence: None)
  Receive Date: 20251112
  Receipt Date: 20251112
  Transmission Date: 20260118
  Serious: Yes (Other)
  Sender: UCB
  Company Number: CN-UCBSA-2025069895

PATIENT
  Age: 9 Year
  Weight: 24 kg

DRUGS (22)
  1. LEVETIRACETAM [Suspect]
     Active Substance: LEVETIRACETAM
     Indication: Generalised tonic-clonic seizure
     Dosage: UNK
  2. LEVETIRACETAM [Suspect]
     Active Substance: LEVETIRACETAM
     Indication: Focal dyscognitive seizures
     Dosage: UNK, DOSE INCREASED
  3. LEVETIRACETAM [Suspect]
     Active Substance: LEVETIRACETAM
     Dosage: UNK, DOSE REDUCED
  4. OXCARBAZEPINE [Suspect]
     Active Substance: OXCARBAZEPINE
     Indication: Generalised tonic-clonic seizure
     Dosage: UNK
  5. OXCARBAZEPINE [Suspect]
     Active Substance: OXCARBAZEPINE
     Indication: Focal dyscognitive seizures
     Dosage: UNK, DOSE INCREASED
  6. OXCARBAZEPINE [Suspect]
     Active Substance: OXCARBAZEPINE
     Dosage: UNK, DOSE REDUCED
  7. MANNITOL [Concomitant]
     Active Substance: MANNITOL
     Indication: Reduction of increased intracranial pressure
     Dosage: UNK
  8. CEFAZOLIN [Concomitant]
     Active Substance: CEFAZOLIN
     Indication: Product used for unknown indication
     Dosage: UNK
  9. METHYLPREDNISOLONE [Concomitant]
     Active Substance: METHYLPREDNISOLONE
     Indication: Product used for unknown indication
     Dosage: UNK
  10. ACYCLOVIR [Concomitant]
     Active Substance: ACYCLOVIR
     Indication: Antiviral treatment
     Dosage: UNK
  11. IMMUNE GLOBULIN NOS [Concomitant]
     Active Substance: IMMUNE GLOBULIN NOS
     Indication: Antiviral treatment
     Dosage: UNK
  12. MIDAZOLAM [Concomitant]
     Active Substance: MIDAZOLAM
     Indication: Analgesic therapy
     Dosage: 0.1 MILLIGRAM/KILOGRAM/HR
  13. MIDAZOLAM [Concomitant]
     Active Substance: MIDAZOLAM
     Indication: Sedation
     Dosage: 0.4 MILLIGRAM/KILOGRAM/HR
  14. MIDAZOLAM [Concomitant]
     Active Substance: MIDAZOLAM
     Dosage: UNK, DOSE REDUCED
  15. REMIFENTANIL [Concomitant]
     Active Substance: REMIFENTANIL
     Indication: Analgesic therapy
     Dosage: 2 ?G/KG/H
  16. REMIFENTANIL [Concomitant]
     Active Substance: REMIFENTANIL
     Indication: Sedation
  17. ESKETAMINE [Concomitant]
     Active Substance: ESKETAMINE
     Indication: Generalised tonic-clonic seizure
     Dosage: 2 MILLIGRAM/KILOGRAM/HR
  18. ESKETAMINE [Concomitant]
     Active Substance: ESKETAMINE
     Indication: Focal dyscognitive seizures
     Dosage: 3 MILLIGRAM/KILOGRAM/HR
  19. ESKETAMINE [Concomitant]
     Active Substance: ESKETAMINE
     Dosage: 5 MILLIGRAM/KILOGRAM/HR
  20. ESKETAMINE [Concomitant]
     Active Substance: ESKETAMINE
     Dosage: UNK, DOSE REDUCED
  21. PROPOFOL [Concomitant]
     Active Substance: PROPOFOL
     Indication: Sedation
     Dosage: 20 ?G/KG/MIN
  22. SODIUM BICARBONATE [Concomitant]
     Active Substance: SODIUM BICARBONATE
     Indication: Alkalosis
     Dosage: 40 MILLILITER, ONCE DAILY (QD) FOR 12 DAYS

REACTIONS (4)
  - Apnoea [Unknown]
  - Anticonvulsant drug level below therapeutic [Unknown]
  - Drug ineffective for unapproved indication [Unknown]
  - Off label use [Unknown]
